FAERS Safety Report 10906824 (Version 1)
Quarter: 2015Q1

REPORT INFORMATION
  Report Type: Report from Study
  Country: US (occurrence: None)
  Receive Date: 20150309
  Receipt Date: 20150309
  Transmission Date: 20150721
  Serious: Yes (Other)
  Sender: FDA-Public Use
  Company Number: 2015COV00043

PATIENT
  Age: 82 Year
  Sex: Female
  Weight: 50.8 kg

DRUGS (3)
  1. METHOTREXATE [Suspect]
     Active Substance: METHOTREXATE
  2. REMICADE [Suspect]
     Active Substance: INFLIXIMAB
     Indication: RHEUMATOID ARTHRITIS
     Route: 042
  3. PLAQUENIL [Suspect]
     Active Substance: HYDROXYCHLOROQUINE SULFATE
     Indication: RHEUMATOID ARTHRITIS

REACTIONS (15)
  - Impaired healing [None]
  - Rash macular [None]
  - Body height decreased [None]
  - Laceration [None]
  - Memory impairment [None]
  - Infection [None]
  - Skin cancer [None]
  - Vitreous floaters [None]
  - Wound [None]
  - Arthropathy [None]
  - Urinary incontinence [None]
  - Bladder disorder [None]
  - Fall [None]
  - Finger deformity [None]
  - Foot deformity [None]

NARRATIVE: CASE EVENT DATE: 201412
